FAERS Safety Report 13337079 (Version 1)
Quarter: 2017Q1

REPORT INFORMATION
  Report Type: Spontaneous
  Country: US (occurrence: US)
  Receive Date: 20170315
  Receipt Date: 20170315
  Transmission Date: 20170428
  Serious: Yes (Disabling)
  Sender: FDA-Public Use
  Company Number: None

PATIENT
  Age: 43 Year
  Sex: Female
  Weight: 63 kg

DRUGS (1)
  1. SIGNATURE CARE PAIN RELIEF [Suspect]
     Active Substance: ACETAMINOPHEN
     Indication: PAIN
     Dates: start: 20170301, end: 20170314

REACTIONS (4)
  - Rash generalised [None]
  - Urticaria [None]
  - Dry skin [None]
  - Pruritus generalised [None]

NARRATIVE: CASE EVENT DATE: 20170313
